FAERS Safety Report 13563488 (Version 1)
Quarter: 2017Q2

REPORT INFORMATION
  Report Type: Spontaneous
  Country: US (occurrence: US)
  Receive Date: 20170519
  Receipt Date: 20170519
  Transmission Date: 20170830
  Serious: Yes (Life-Threatening)
  Sender: FDA-Public Use
  Company Number: None

PATIENT
  Age: 51 Year
  Sex: Female
  Weight: 43.2 kg

DRUGS (3)
  1. DEXAMETHASONE. [Suspect]
     Active Substance: DEXAMETHASONE
  2. LIDOCAINE. [Suspect]
     Active Substance: LIDOCAINE
     Indication: TRIGGER FINGER
     Dates: start: 20170330
  3. MARCAINE [Suspect]
     Active Substance: BUPIVACAINE HYDROCHLORIDE

REACTIONS (13)
  - Throat irritation [None]
  - Paraesthesia [None]
  - Chills [None]
  - Parosmia [None]
  - Dizziness [None]
  - Pain in extremity [None]
  - Dyspnoea [None]
  - Insomnia [None]
  - Chest pain [None]
  - Swelling face [None]
  - Swollen tongue [None]
  - Burning sensation [None]
  - Hypoaesthesia [None]

NARRATIVE: CASE EVENT DATE: 20170330
